FAERS Safety Report 11401990 (Version 1)
Quarter: 2015Q3

REPORT INFORMATION
  Report Type: Spontaneous
  Country: US (occurrence: None)
  Receive Date: 20150819
  Receipt Date: 20150819
  Transmission Date: 20151125
  Serious: Yes (Other)
  Sender: FDA-Public Use
  Company Number: None

PATIENT
  Age: 32 Year
  Sex: Female

DRUGS (1)
  1. SPRYCEL [Suspect]
     Active Substance: DASATINIB
     Dosage: 1 TABLET
     Route: 048
     Dates: start: 20140702, end: 20150814

REACTIONS (2)
  - Pregnancy [None]
  - Maternal exposure during pregnancy [None]
